FAERS Safety Report 12587288 (Version 2)
Quarter: 2016Q4

REPORT INFORMATION
  Report Type: Spontaneous
  Country: FR (occurrence: FR)
  Receive Date: 20160725
  Receipt Date: 20161020
  Transmission Date: 20170207
  Serious: Yes (Hospitalization)
  Sender: FDA-Public Use
  Company Number: FR-PFIZER INC-2016339403

PATIENT
  Age: 73 Year
  Sex: Male

DRUGS (13)
  1. NEULASTA [Concomitant]
     Active Substance: PEGFILGRASTIM
     Dosage: UNK
     Dates: start: 20160619, end: 20160619
  2. CARBOPLATINE HOSPIRA [Suspect]
     Active Substance: CARBOPLATIN
     Indication: BRONCHIAL CARCINOMA
     Dosage: 373 MG, SINGLE
     Route: 041
     Dates: start: 20160616, end: 20160616
  3. PERINDOPRIL INDAPAMID [Concomitant]
  4. ONDANSETRON [Concomitant]
     Active Substance: ONDANSETRON
     Dosage: UNK
     Dates: start: 20160616
  5. ETOPOSIDE MYLAN [Interacting]
     Active Substance: ETOPOSIDE
     Indication: BRONCHIAL CARCINOMA
     Dosage: 147 MG, 1X/DAY
     Route: 041
     Dates: start: 20160616, end: 20160618
  6. CLOPIDOGREL [Concomitant]
     Active Substance: CLOPIDOGREL BISULFATE
  7. METOCLOPRAMIDE. [Concomitant]
     Active Substance: METOCLOPRAMIDE
     Dosage: UNK
     Dates: start: 20160616
  8. METHYLPREDNISOLONE SODIUM SUCCINATE. [Interacting]
     Active Substance: METHYLPREDNISOLONE SODIUM SUCCINATE
     Indication: BRONCHIAL CARCINOMA
     Dosage: 120 MG, DAILY
     Route: 042
     Dates: start: 20160602, end: 20160612
  9. SPIRIVA [Concomitant]
     Active Substance: TIOTROPIUM BROMIDE MONOHYDRATE
  10. MACROGOL [Concomitant]
     Active Substance: POLYETHYLENE GLYCOLS
  11. METHYLPREDNISOLONE SODIUM SUCCINATE. [Interacting]
     Active Substance: METHYLPREDNISOLONE SODIUM SUCCINATE
     Dosage: 48 MG, DAILY
     Route: 048
     Dates: start: 20160614, end: 20160622
  12. ATORVASTATIN [Concomitant]
     Active Substance: ATORVASTATIN
  13. PARACETAMOL [Concomitant]
     Active Substance: ACETAMINOPHEN

REACTIONS (3)
  - Drug interaction [Recovered/Resolved]
  - Septic shock [Recovered/Resolved]
  - Bone marrow failure [Recovered/Resolved]

NARRATIVE: CASE EVENT DATE: 20160623
